FAERS Safety Report 9415241 (Version 1)
Quarter: 2013Q3

REPORT INFORMATION
  Report Type: Report from Study
  Country: US (occurrence: US)
  Receive Date: 20130723
  Receipt Date: 20130723
  Transmission Date: 20140515
  Serious: Yes (Congenital Anomaly)
  Sender: FDA-Public Use
  Company Number: US-BAYER-2013-088328

PATIENT
  Sex: 0

DRUGS (2)
  1. PHENYLEPHRINE HYDROCHLORIDE [Suspect]
     Route: 064
  2. PHENYLEPHRINE HYDROCHLORIDE [Suspect]
     Route: 064

REACTIONS (2)
  - Limb malformation [None]
  - Foetal exposure during pregnancy [None]
